FAERS Safety Report 5306909-9 (Version None)
Quarter: 2007Q2

REPORT INFORMATION
  Report Type: 
  Country: None (occurrence: None)
  Receive Date: 20070425
  Receipt Date: 20070406
  Transmission Date: 20071010
  Serious: Yes (Hospitalization, Other)
  Sender: FDA-Public Use
  Company Number: PHRM2007FR01219

PATIENT
  Age: 63 Year
  Sex: Male

DRUGS (3)
  1. TEGRETOL [Suspect]
     Indication: POST-TRAUMATIC EPILEPSY
     Dosage: 400 MG, BID
     Route: 048
     Dates: start: 19920101, end: 20070101
  2. NEORAL [Suspect]
     Indication: BONE MARROW TRANSPLANT
     Dosage: 100 MG, BID
     Route: 048
     Dates: start: 20061214
  3. TRIFLUCAN [Suspect]
     Dosage: 200 MG, BID
     Route: 048
     Dates: start: 20061210

REACTIONS (13)
  - ANTICONVULSANT DRUG LEVEL INCREASED [None]
  - ASTHENIA [None]
  - CONFUSIONAL STATE [None]
  - DRUG INTERACTION POTENTIATION [None]
  - DYSSTASIA [None]
  - GENERAL PHYSICAL HEALTH DETERIORATION [None]
  - HEADACHE [None]
  - INFECTION [None]
  - NAUSEA [None]
  - NON-HODGKIN'S LYMPHOMA [None]
  - PSYCHOMOTOR SKILLS IMPAIRED [None]
  - RENAL FAILURE [None]
  - VOMITING [None]
